FAERS Safety Report 7617006-1 (Version None)
Quarter: 2011Q3

REPORT INFORMATION
  Report Type: 
  Country: None (occurrence: None)
  Receive Date: 20110718
  Receipt Date: 20110714
  Transmission Date: 20111222
  Serious: Yes (Hospitalization)
  Sender: FDA-Public Use
  Company Number: US-BRISTOL-MYERS SQUIBB COMPANY-15565591

PATIENT
  Age: 74 Year
  Sex: Male

DRUGS (32)
  1. PLAVIX [Concomitant]
  2. HYDROCORTISONE [Concomitant]
     Dosage: CREAM 10MG AND 5MG
  3. LOMOTIL [Concomitant]
     Route: 048
  4. ANDROGEL [Concomitant]
  5. GLUCOSAMINE [Concomitant]
     Route: 048
  6. M.V.I. [Concomitant]
     Dosage: 1DF:1TAB
     Route: 048
  7. VYTORIN [Concomitant]
     Dosage: 1DF:10/40MG
     Route: 048
  8. HYDROCHLOROTHIAZIDE [Concomitant]
     Route: 048
  9. BENADRYL [Concomitant]
     Route: 048
  10. PREDNISONE [Concomitant]
     Route: 048
  11. PROTONIX [Concomitant]
     Route: 048
  12. ACIPHEX [Concomitant]
     Route: 048
  13. COMPAZINE [Concomitant]
  14. IPILIMUMAB [Suspect]
     Indication: MALIGNANT MELANOMA
     Dosage: LAST DOSE ON 08-FEB-2011 CYCLICAL
     Route: 042
     Dates: start: 20110118, end: 20110208
  15. INSULIN SLIDING SCALE [Concomitant]
  16. ASPIRIN [Concomitant]
     Route: 048
  17. ACIPHEX [Concomitant]
  18. CHONDROITIN [Concomitant]
     Route: 048
  19. PREVACID [Concomitant]
     Route: 048
  20. ZOFRAN [Concomitant]
     Route: 048
  21. GLYBURIDE [Concomitant]
     Route: 048
  22. LASIX [Concomitant]
     Route: 048
  23. DILTIAZEM HCL [Concomitant]
     Route: 048
  24. IMODIUM [Concomitant]
     Route: 048
  25. CELEBREX [Concomitant]
     Route: 048
  26. DIOVAN [Concomitant]
     Route: 048
  27. ALLOPURINOL [Concomitant]
     Route: 048
  28. ASPIRIN [Concomitant]
     Route: 048
  29. POTASSIUM CHLORIDE [Concomitant]
  30. ACYCLOVIR [Concomitant]
     Route: 048
  31. CARVEDILOL [Concomitant]
  32. DIOVAN HCT [Concomitant]
     Dosage: 1 DF: 160/12.5 MG
     Route: 048

REACTIONS (4)
  - GASTROINTESTINAL HAEMORRHAGE [None]
  - DEHYDRATION [None]
  - LARGE INTESTINE PERFORATION [None]
  - DIARRHOEA [None]
